FAERS Safety Report 10044181 (Version 1)
Quarter: 2014Q1

REPORT INFORMATION
  Report Type: Spontaneous
  Country: US (occurrence: None)
  Receive Date: 20140327
  Receipt Date: 20140327
  Transmission Date: 20141002
  Serious: Yes (Hospitalization)
  Sender: FDA-Public Use
  Company Number: None

PATIENT
  Age: 60 Year
  Sex: Male
  Weight: 55 kg

DRUGS (1)
  1. AMOXICILLIN/CLAVULANATE [Suspect]
     Indication: RENAL FAILURE ACUTE
     Dosage: MG  BID  PO
     Route: 048
     Dates: start: 20140314, end: 20140320

REACTIONS (3)
  - Diarrhoea [None]
  - Dehydration [None]
  - Renal failure acute [None]
